FAERS Safety Report 10233609 (Version 2)
Quarter: 2014Q3

REPORT INFORMATION
  Report Type: Spontaneous
  Country: US (occurrence: US)
  Receive Date: 20140612
  Receipt Date: 20140709
  Transmission Date: 20150326
  Serious: Yes (Hospitalization, Disabling)
  Sender: FDA-Public Use
  Company Number: US-BAYER-2014-087128

PATIENT
  Age: 19 Year
  Sex: Female
  Weight: 58.5 kg

DRUGS (3)
  1. IBUPROFEN. [Concomitant]
     Active Substance: IBUPROFEN
     Indication: PAIN
     Dosage: 800 MG,  EVERY 8 HOURS AS NEEDED
  2. NORCO [Concomitant]
     Active Substance: ACETAMINOPHEN\HYDROCODONE BITARTRATE
     Indication: PAIN
     Dosage: ONE-HALF] TO 1 TABLET, 10/325, EVERY 4 HOURS AS NEEDED
  3. MIRENA [Suspect]
     Active Substance: LEVONORGESTREL
     Indication: CONTRACEPTION
     Dosage: 20 MCG/24HR, CONT
     Route: 015
     Dates: start: 20130215, end: 20130517

REACTIONS (7)
  - Anhedonia [None]
  - Uterine perforation [None]
  - Device issue [None]
  - Injury [None]
  - Pain [None]
  - General physical health deterioration [None]
  - Emotional distress [None]

NARRATIVE: CASE EVENT DATE: 201303
